FAERS Safety Report 7546894-2 (Version None)
Quarter: 2011Q2

REPORT INFORMATION
  Report Type: 
  Country: None (occurrence: None)
  Receive Date: 20110614
  Receipt Date: 20110531
  Transmission Date: 20111010
  Serious: Yes (Other)
  Sender: FDA-Public Use
  Company Number: TW-TYCO HEALTHCARE/MALLINCKRODT-T201101149

PATIENT
  Age: 42 Year
  Sex: Male

DRUGS (7)
  1. ARIPIPRAZOLE [Suspect]
     Indication: OBSESSIVE-COMPULSIVE PERSONALITY DISORDER
     Dosage: 20 MG, QD X 28 DAYS
  2. RISPERIDONE [Concomitant]
     Dosage: 2 TO 4 MG QD
  3. FLUOXETINE HCL [Suspect]
     Indication: PSYCHOTIC DISORDER
     Dosage: 60 TO 80 MG PER DAY
  4. ARIPIPRAZOLE [Suspect]
     Dosage: TAPERED FROM 20MG  TO 10 MG, QD OVER 7 DAYS
  5. ARIPIPRAZOLE [Suspect]
     Dosage: RESUMED 10 MG QD X 1 WEEK
  6. FLUOXETINE HCL [Suspect]
     Indication: OBSESSIVE-COMPULSIVE DISORDER
     Dosage: 80 MG, QD
  7. ARIPIPRAZOLE [Suspect]
     Indication: PSYCHOTIC DISORDER
     Dosage: 15 MG, QD X ONE MONTH

REACTIONS (5)
  - OBSESSIVE-COMPULSIVE DISORDER [None]
  - LABELLED DRUG-DRUG INTERACTION MEDICATION ERROR [None]
  - HALLUCINATION, AUDITORY [None]
  - LEUKOPENIA [None]
  - NEUTROPENIA [None]
